FAERS Safety Report 13816825 (Version 1)
Quarter: 2017Q3

REPORT INFORMATION
  Report Type: Spontaneous
  Country: US (occurrence: US)
  Receive Date: 20170731
  Receipt Date: 20170731
  Transmission Date: 20171127
  Serious: No
  Sender: FDA-Public Use
  Company Number: US-JNJFOC-20170623558

PATIENT
  Age: 66 Year
  Sex: Male
  Weight: 83.92 kg

DRUGS (4)
  1. ZYRTEC [Suspect]
     Active Substance: CETIRIZINE HYDROCHLORIDE
     Indication: SEASONAL ALLERGY
     Dosage: 1 TABLET; PATIENT TAKES 1 TABLET IN THE MORNING AND 1 IN THE EVENING.
     Route: 048
     Dates: start: 20170619, end: 20170622
  2. ZYRTEC [Suspect]
     Active Substance: CETIRIZINE HYDROCHLORIDE
     Indication: THROAT IRRITATION
     Dosage: 1 TABLET; PATIENT TAKES 1 TABLET IN THE MORNING AND 1 IN THE EVENING.
     Route: 048
     Dates: start: 20170619, end: 20170622
  3. ZYRTEC [Suspect]
     Active Substance: CETIRIZINE HYDROCHLORIDE
     Indication: HYPERSENSITIVITY
     Dosage: 1 TABLET; PATIENT TAKES 1 TABLET IN THE MORNING AND 1 IN THE EVENING.
     Route: 048
     Dates: start: 20170619, end: 20170622
  4. ZYRTEC [Suspect]
     Active Substance: CETIRIZINE HYDROCHLORIDE
     Indication: NASAL PRURITUS
     Dosage: 1 TABLET; PATIENT TAKES 1 TABLET IN THE MORNING AND 1 IN THE EVENING.
     Route: 048
     Dates: start: 20170619, end: 20170622

REACTIONS (2)
  - Drug ineffective [Unknown]
  - Incorrect dose administered [Unknown]
